FAERS Safety Report 25385517 (Version 1)
Quarter: 2025Q2

REPORT INFORMATION
  Report Type: Spontaneous
  Country: US (occurrence: None)
  Receive Date: 20250601
  Receipt Date: 20250601
  Transmission Date: 20250716
  Serious: Yes (Disabling)
  Sender: FDA-CTU
  Company Number: None

PATIENT
  Age: 55 Year
  Sex: Female

DRUGS (1)
  1. FLUOXETINE [Suspect]
     Active Substance: FLUOXETINE HYDROCHLORIDE
     Indication: Depression
     Dates: start: 19951212, end: 20190119

REACTIONS (6)
  - Withdrawal syndrome [None]
  - Paraesthesia [None]
  - Dysaesthesia [None]
  - Food allergy [None]
  - Hypokinesia [None]
  - Withdrawal syndrome [None]

NARRATIVE: CASE EVENT DATE: 20191121
